FAERS Safety Report 19498659 (Version 1)
Quarter: 2021Q3

REPORT INFORMATION
  Report Type: Spontaneous
  Country: CA (occurrence: CA)
  Receive Date: 20210706
  Receipt Date: 20210706
  Transmission Date: 20211014
  Serious: Yes (Hospitalization, Other)
  Sender: FDA-Public Use
  Company Number: CA-PFIZER INC-2021814973

PATIENT
  Age: 15 Year
  Sex: Male

DRUGS (8)
  1. METHOTREXATE SODIUM. [Suspect]
     Active Substance: METHOTREXATE SODIUM
     Dosage: UNK
     Dates: start: 201603, end: 201811
  2. IMURAN [Concomitant]
     Active Substance: AZATHIOPRINE
     Dosage: 125 MG, DAILY
  3. IMURAN [Concomitant]
     Active Substance: AZATHIOPRINE
     Dosage: 175 MG, DAILY
     Dates: end: 2018
  4. FLAGYL [Concomitant]
     Active Substance: METRONIDAZOLE\METRONIDAZOLE HYDROCHLORIDE
     Indication: PROCTALGIA
     Dosage: UNK
  5. CIPRO [Concomitant]
     Active Substance: CIPROFLOXACIN HYDROCHLORIDE
     Indication: PROCTALGIA
     Dosage: UNK
  6. REMICADE [Concomitant]
     Active Substance: INFLIXIMAB
     Dosage: EVERY 6 WEEKS
     Dates: start: 2018
  7. IMURAN [Concomitant]
     Active Substance: AZATHIOPRINE
     Dosage: 75 MG, DAILY
     Dates: start: 201703
  8. REMICADE [Concomitant]
     Active Substance: INFLIXIMAB
     Dosage: RAPID INDICTION OF 5 DOSES OVER 6?8 WEEKS

REACTIONS (7)
  - Anorectal disorder [Unknown]
  - Faecal calprotectin increased [Unknown]
  - Large intestine polyp [Unknown]
  - Gastric disorder [Unknown]
  - Fistula [Unknown]
  - Nausea [Unknown]
  - Anal abscess [Unknown]

NARRATIVE: CASE EVENT DATE: 201607
